FAERS Safety Report 23746737 (Version 1)
Quarter: 2024Q2

REPORT INFORMATION
  Report Type: Report from Study
  Country: US (occurrence: US)
  Receive Date: 20240416
  Receipt Date: 20240416
  Transmission Date: 20240716
  Serious: Yes (Hospitalization)
  Sender: FDA-Public Use
  Company Number: US-BAYER-2024A048980

PATIENT
  Age: 75 Year
  Sex: Male
  Weight: 85.261 kg

DRUGS (15)
  1. ADEMPAS [Suspect]
     Active Substance: RIOCIGUAT
     Indication: Pulmonary arterial hypertension
     Dosage: UNK
     Dates: start: 20231016
  2. ADEMPAS [Suspect]
     Active Substance: RIOCIGUAT
     Indication: Pulmonary arterial hypertension
     Dosage: 2.5 MG, TID
     Route: 048
  3. PANTOPRAZOLE SODIUM [Concomitant]
     Active Substance: PANTOPRAZOLE SODIUM
  4. TRAZODONE HCL [Concomitant]
     Active Substance: TRAZODONE HYDROCHLORIDE
  5. XARELTO [Concomitant]
     Active Substance: RIVAROXABAN
  6. HYDROMORPHONE [Concomitant]
     Active Substance: HYDROMORPHONE
  7. SERTRALINE HYDROCHLORIDE [Concomitant]
     Active Substance: SERTRALINE HYDROCHLORIDE
  8. METOPROLOL SUCCINATE [Concomitant]
     Active Substance: METOPROLOL SUCCINATE
  9. LISINOPRIL [Concomitant]
     Active Substance: LISINOPRIL
  10. FAMOTIDINE [Concomitant]
     Active Substance: FAMOTIDINE
  11. VITAMINS NOS [Concomitant]
     Active Substance: VITAMINS
  12. OXYGEN [Concomitant]
     Active Substance: OXYGEN
  13. CEFUROXIME [Concomitant]
     Active Substance: CEFUROXIME
  14. GABAPENTIN [Concomitant]
     Active Substance: GABAPENTIN
  15. DICYCLOMINE HYDROCHLORIDE [Concomitant]
     Active Substance: DICYCLOMINE HYDROCHLORIDE

REACTIONS (2)
  - Medical device site thrombosis [None]
  - Infection [None]

NARRATIVE: CASE EVENT DATE: 20240326
